FAERS Safety Report 9264289 (Version 1)
Quarter: 2013Q2

REPORT INFORMATION
  Report Type: Spontaneous
  Country: US (occurrence: US)
  Receive Date: 20130430
  Receipt Date: 20130430
  Transmission Date: 20140414
  Serious: No
  Sender: FDA-Public Use
  Company Number: US-TEVA-402082USA

PATIENT
  Sex: Female

DRUGS (2)
  1. PLAN B ONE-STEP [Suspect]
     Indication: POST COITAL CONTRACEPTION
     Dosage: 1.5 MILLIGRAM DAILY;
     Route: 048
     Dates: start: 20130426, end: 20130426
  2. CLONAZEPAM [Concomitant]
     Indication: ANXIETY
     Route: 048

REACTIONS (3)
  - Back pain [Not Recovered/Not Resolved]
  - Irritability [Not Recovered/Not Resolved]
  - Menstruation irregular [Not Recovered/Not Resolved]
